FAERS Safety Report 11785109 (Version 1)
Quarter: 2015Q4

REPORT INFORMATION
  Report Type: Spontaneous
  Country: US (occurrence: None)
  Receive Date: 20151125
  Receipt Date: 20151125
  Transmission Date: 20160305
  Serious: No
  Sender: FDA-Public Use
  Company Number: None

PATIENT
  Age: 7 Year
  Sex: Female
  Weight: 15.88 kg

DRUGS (3)
  1. CHILDREN CLARITIN ALLERGY [Concomitant]
     Active Substance: LORATADINE
  2. CHILDREN^S MULTI VITAMIN [Concomitant]
  3. MIRALAX [Suspect]
     Active Substance: POLYETHYLENE GLYCOL 3350
     Indication: CONSTIPATION
     Dosage: 1 CAPFUL MIXED IN JUICE
     Route: 048
     Dates: start: 2013, end: 2015

REACTIONS (3)
  - Emotional disorder [None]
  - Extra dose administered [None]
  - Anxiety [None]

NARRATIVE: CASE EVENT DATE: 20151124
